FAERS Safety Report 5502599-0 (Version None)
Quarter: 2007Q4

REPORT INFORMATION
  Report Type: 
  Country: None (occurrence: None)
  Receive Date: 20071031
  Receipt Date: 20071023
  Transmission Date: 20080405
  Serious: Yes (Other)
  Sender: FDA-Public Use
  Company Number: PHBS2007IE17729

PATIENT
  Age: 69 Year
  Sex: Male

DRUGS (5)
  1. DIOVAN [Suspect]
     Indication: HYPERTENSION
     Dosage: 80 MG/D
     Route: 048
     Dates: start: 20070101
  2. SINGULAIR [Suspect]
     Indication: ASTHMA
     Dosage: 10 MG/D
     Route: 048
     Dates: start: 20070101
  3. SYMBICORT [Concomitant]
  4. VENTOLIN [Concomitant]
  5. AMLODIPINE [Concomitant]

REACTIONS (4)
  - ASTHENIA [None]
  - EOSINOPHILIA [None]
  - NEURITIS [None]
  - RENAL IMPAIRMENT [None]
